FAERS Safety Report 8577048 (Version 4)
Quarter: 2014Q2

REPORT INFORMATION
  Report Type: Spontaneous
  Country: US (occurrence: US)
  Receive Date: 20120524
  Receipt Date: 20140605
  Transmission Date: 20141212
  Serious: Yes (Hospitalization, Other)
  Sender: FDA-Public Use
  Company Number: US-BAYER-2012-050417

PATIENT
  Age: 28 Year
  Sex: Female
  Weight: 56.69 kg

DRUGS (3)
  1. MIRENA [Suspect]
     Indication: CONTRACEPTION
     Dosage: 20 MCG/24HR, CONT
     Route: 015
     Dates: start: 20080226, end: 201006
  2. LORTAB [Concomitant]
     Dosage: 7.5/500, 1-2 TABS EVERY 6 H (INTERPRETED AS HOURS)
     Dates: start: 20100615
  3. ANAPROX [Concomitant]
     Dosage: 550 MG 1 TAB BID (TWICE DAILY)
     Dates: start: 20100615

REACTIONS (20)
  - Uterine perforation [None]
  - Fibrosis [None]
  - Rib fracture [None]
  - Abdominal pain lower [None]
  - Discomfort [None]
  - Menorrhagia [None]
  - Injury [None]
  - Emotional distress [None]
  - Pelvic pain [None]
  - Dyspareunia [None]
  - Back pain [None]
  - Arthralgia [None]
  - Bone density decreased [None]
  - Depression [None]
  - Anxiety [None]
  - Mood altered [None]
  - General physical health deterioration [None]
  - Panic attack [None]
  - Anxiety [None]
  - Device issue [None]
